FAERS Safety Report 5482556-3 (Version None)
Quarter: 2007Q4

REPORT INFORMATION
  Report Type: 
  Country: None (occurrence: None)
  Receive Date: 20071011
  Receipt Date: 20070705
  Transmission Date: 20080405
  Serious: No
  Sender: FDA-Public Use
  Company Number: A0661929A

PATIENT
  Age: 65 Year
  Sex: Female

DRUGS (8)
  1. TYKERB [Suspect]
     Indication: BREAST CANCER
     Dosage: 5TAB PER DAY
     Route: 048
     Dates: start: 20070419
  2. XELODA [Concomitant]
  3. ZOFRAN [Concomitant]
  4. KLONOPIN [Concomitant]
  5. BENADRYL [Concomitant]
  6. ANTIBIOTIC [Concomitant]
  7. MULTI-VITAMIN [Concomitant]
  8. SENOKOT [Concomitant]

REACTIONS (5)
  - ASTHENIA [None]
  - BALANCE DISORDER [None]
  - HYPERSOMNIA [None]
  - NAUSEA [None]
  - WEIGHT DECREASED [None]
